FAERS Safety Report 12795166 (Version 1)
Quarter: 2016Q3

REPORT INFORMATION
  Report Type: Report from Study
  Country: US (occurrence: US)
  Receive Date: 20160929
  Receipt Date: 20160929
  Transmission Date: 20161109
  Serious: Yes (Other)
  Sender: FDA-Public Use
  Company Number: US-AMGEN-USASL2016132785

PATIENT

DRUGS (1)
  1. KYPROLIS [Suspect]
     Active Substance: CARFILZOMIB
     Indication: PRODUCT USED FOR UNKNOWN INDICATION
     Dosage: UNK
     Route: 065

REACTIONS (7)
  - Nausea [Unknown]
  - Pneumonia [Unknown]
  - Dyspnoea [Unknown]
  - Immunodeficiency common variable [Unknown]
  - Hypovolaemia [Unknown]
  - Coagulopathy [Unknown]
  - Vomiting [Unknown]

NARRATIVE: CASE EVENT DATE: 20141007
